FAERS Safety Report 21920154 (Version 1)
Quarter: 2023Q1

REPORT INFORMATION
  Report Type: Spontaneous
  Country: DE (occurrence: DE)
  Receive Date: 20230127
  Receipt Date: 20230127
  Transmission Date: 20230418
  Serious: Yes (Death, Life-Threatening, Hospitalization, Other)
  Sender: FDA-Public Use
  Company Number: None

PATIENT
  Sex: Female

DRUGS (6)
  1. TORSEMIDE [Suspect]
     Active Substance: TORSEMIDE
     Indication: Renal failure
     Dosage: 20 MILLIGRAM, QD
     Route: 048
     Dates: end: 20220831
  2. TORSEMIDE [Suspect]
     Active Substance: TORSEMIDE
     Indication: Cardiac failure
  3. EMPAGLIFLOZIN [Suspect]
     Active Substance: EMPAGLIFLOZIN
     Indication: Type 2 diabetes mellitus
     Dosage: 10 MILLIGRAM, QD
     Route: 048
     Dates: end: 20220831
  4. SPIRONOLACTONE [Suspect]
     Active Substance: SPIRONOLACTONE
     Indication: Renal failure
     Dosage: 25 MILLIGRAM, QD
     Route: 048
     Dates: end: 20220928
  5. SPIRONOLACTONE [Suspect]
     Active Substance: SPIRONOLACTONE
     Indication: Cardiac failure
  6. NALOXONE HYDROCHLORIDE\TILIDINE HYDROCHLORIDE [Concomitant]
     Active Substance: NALOXONE HYDROCHLORIDE\TILIDINE HYDROCHLORIDE
     Indication: Analgesic therapy
     Dosage: 50 MILLIGRAM, QD
     Route: 048

REACTIONS (3)
  - Acute kidney injury [Fatal]
  - Metabolic acidosis [Fatal]
  - Hypoglycaemia [Unknown]
